FAERS Safety Report 9473987 (Version 3)
Quarter: 2014Q1

REPORT INFORMATION
  Report Type: Spontaneous
  Country: GB (occurrence: GB)
  Receive Date: 20130823
  Receipt Date: 20140210
  Transmission Date: 20141002
  Serious: Yes (Hospitalization, Other)
  Sender: FDA-Public Use
  Company Number: GB-TEVA-426696ISR

PATIENT
  Age: 51 Year
  Sex: Male
  Weight: 57.14 kg

DRUGS (9)
  1. LANSOPRAZOLE [Suspect]
     Indication: GASTROOESOPHAGEAL REFLUX DISEASE
     Dosage: 30 MILLIGRAM DAILY; 30 MG, DAILY
     Route: 048
     Dates: end: 20130612
  2. LANSOPRAZOLE [Suspect]
     Dosage: SINGLE DOSE
     Route: 048
     Dates: start: 20130419
  3. GLIVEC [Suspect]
     Indication: CHRONIC MYELOID LEUKAEMIA
     Dosage: 100 MILLIGRAM DAILY; 100 MG, DAILY
     Route: 048
     Dates: start: 20130606, end: 20130613
  4. SPRYCEL [Suspect]
     Route: 048
     Dates: start: 20130418, end: 20130420
  5. AMLODIPINE [Concomitant]
     Indication: HYPERTENSION
     Dosage: 5 MILLIGRAM DAILY; 5 MG, DAILY
     Route: 048
     Dates: start: 20130611
  6. CITALOPRAM [Concomitant]
     Indication: DEPRESSION
     Dosage: 20 MILLIGRAM DAILY; 20 MG, DAILY
     Route: 048
  7. RANITIDINE [Concomitant]
     Indication: GASTROOESOPHAGEAL REFLUX DISEASE
     Dosage: 150 MILLIGRAM DAILY; 150 MG, DAILY
     Route: 048
     Dates: start: 20130611
  8. ACIDEX [Concomitant]
     Indication: GASTROOESOPHAGEAL REFLUX DISEASE
     Dosage: 30 ML DAILY; 30 ML, DAILY (10 ML TID)
     Route: 048
     Dates: start: 20130611
  9. METOCLOPRAMIDE [Concomitant]

REACTIONS (6)
  - Glomerulonephritis [Recovered/Resolved with Sequelae]
  - Renal impairment [Recovered/Resolved with Sequelae]
  - Renal vasculitis [Recovered/Resolved with Sequelae]
  - Chest pain [Unknown]
  - Rash [Unknown]
  - Headache [Unknown]
